FAERS Safety Report 14749978 (Version 4)
Quarter: 2018Q2

REPORT INFORMATION
  Report Type: Report from Study
  Country: None (occurrence: US)
  Receive Date: 20180412
  Receipt Date: 20180523
  Transmission Date: 20180711
  Serious: Yes (Other)
  Sender: FDA-Public Use
  Company Number: US-ABBVIE-18K-163-2318883-00

PATIENT
  Age: 24 Year
  Sex: Female
  Weight: 61.29 kg

DRUGS (4)
  1. HUMIRA [Suspect]
     Active Substance: ADALIMUMAB
     Indication: CROHN^S DISEASE
     Route: 058
     Dates: start: 20180406, end: 20180406
  2. HUMIRA [Suspect]
     Active Substance: ADALIMUMAB
     Route: 058
     Dates: start: 201804, end: 20180413
  3. CLINDAMYCIN. [Suspect]
     Active Substance: CLINDAMYCIN
     Indication: URINARY TRACT INFECTION
     Route: 048
     Dates: start: 20180322, end: 20180331
  4. HUMIRA [Suspect]
     Active Substance: ADALIMUMAB
     Indication: ANKYLOSING SPONDYLITIS
     Route: 058
     Dates: start: 20180323, end: 20180323

REACTIONS (17)
  - Blood pressure increased [Recovered/Resolved]
  - Injection site bruising [Unknown]
  - Dyspnoea [Not Recovered/Not Resolved]
  - Seizure [Unknown]
  - Focal nodular hyperplasia [Unknown]
  - Blood pressure increased [Not Recovered/Not Resolved]
  - Dehydration [Recovered/Resolved]
  - Arthralgia [Unknown]
  - Heart rate increased [Not Recovered/Not Resolved]
  - Blood prolactin increased [Not Recovered/Not Resolved]
  - Seizure [Recovered/Resolved]
  - Heart rate increased [Recovered/Resolved]
  - Chest pain [Not Recovered/Not Resolved]
  - Crohn^s disease [Unknown]
  - Seizure [Recovered/Resolved]
  - Hyperaesthesia [Recovered/Resolved]
  - Crohn^s disease [Recovered/Resolved]

NARRATIVE: CASE EVENT DATE: 20180324
